FAERS Safety Report 15725948 (Version 3)
Quarter: 2019Q1

REPORT INFORMATION
  Report Type: Spontaneous
  Country: US (occurrence: US)
  Receive Date: 20181216
  Receipt Date: 20190304
  Transmission Date: 20190417
  Serious: Yes (Death, Other)
  Sender: FDA-Public Use
  Company Number: PHEH2018US052982

PATIENT
  Sex: Male

DRUGS (2)
  1. TASIGNA [Suspect]
     Active Substance: NILOTINIB
     Indication: CHRONIC MYELOID LEUKAEMIA
     Dosage: 01 DF, BID
     Route: 048
     Dates: start: 20100706, end: 20120419
  2. SPRYCEL [Suspect]
     Active Substance: DASATINIB
     Indication: CHRONIC MYELOID LEUKAEMIA
     Dosage: UNK
     Route: 065
     Dates: start: 20120419

REACTIONS (14)
  - Cardiomyopathy [Unknown]
  - Coronary artery disease [Unknown]
  - Arteriosclerosis coronary artery [Unknown]
  - Death [Fatal]
  - Hypoxia [Unknown]
  - Cardiovascular disorder [Unknown]
  - Diabetes mellitus [Unknown]
  - Pleural effusion [Unknown]
  - Peripheral arterial occlusive disease [Unknown]
  - Dyspnoea [Unknown]
  - Peripheral vascular disorder [Unknown]
  - Ventricular dysfunction [Unknown]
  - Anaemia [Unknown]
  - Gangrene [Unknown]
